FAERS Safety Report 16238660 (Version 1)
Quarter: 2019Q2

REPORT INFORMATION
  Report Type: Spontaneous
  Country: CA (occurrence: CA)
  Receive Date: 20190425
  Receipt Date: 20190425
  Transmission Date: 20190711
  Serious: Yes (Death)
  Sender: FDA-Public Use
  Company Number: CA-PFIZER INC-2019174498

PATIENT
  Age: 70 Year
  Sex: Female
  Weight: 59 kg

DRUGS (8)
  1. IBUPROFEN. [Concomitant]
     Active Substance: IBUPROFEN
     Dosage: UNK
  2. QVAR [Concomitant]
     Active Substance: BECLOMETHASONE DIPROPIONATE
     Dosage: UNK
  3. AMLODIPINE [Concomitant]
     Active Substance: AMLODIPINE BESYLATE
     Dosage: UNK
  4. VENTOLIN [Concomitant]
     Active Substance: ALBUTEROL SULFATE
     Dosage: UNK
  5. IBUPROFEN. [Suspect]
     Active Substance: IBUPROFEN
     Dosage: UNK
     Route: 065
  6. AVELOX [Concomitant]
     Active Substance: MOXIFLOXACIN HYDROCHLORIDE
     Dosage: UNK
  7. CIPROFLOXACIN. [Suspect]
     Active Substance: CIPROFLOXACIN
     Indication: PNEUMONIA
     Dosage: 2 DF, UNK
     Route: 048
  8. SPIRIVA [Concomitant]
     Active Substance: TIOTROPIUM BROMIDE MONOHYDRATE
     Dosage: UNK

REACTIONS (14)
  - Pain [Fatal]
  - Vein discolouration [Fatal]
  - Chondropathy [Fatal]
  - Coma [Fatal]
  - Tinnitus [Fatal]
  - Arthralgia [Fatal]
  - Mental disorder [Fatal]
  - Abdominal rigidity [Fatal]
  - Personality change [Fatal]
  - Psychotic disorder [Fatal]
  - Vasodilatation [Fatal]
  - Condition aggravated [Fatal]
  - Nightmare [Fatal]
  - Dysphagia [Fatal]
